FAERS Safety Report 5504157-0 (Version None)
Quarter: 2007Q4

REPORT INFORMATION
  Report Type: 
  Country: None (occurrence: None)
  Receive Date: 20071101
  Receipt Date: 20071031
  Transmission Date: 20080405
  Serious: Yes (Disabling, Other)
  Sender: FDA-Public Use
  Company Number: A0690797A

PATIENT
  Age: 55 Year
  Sex: Female

DRUGS (7)
  1. LOTRONEX [Suspect]
     Indication: DRUG USE FOR UNKNOWN INDICATION
     Dosage: 1MG PER DAY
     Route: 048
     Dates: start: 20071026, end: 20071026
  2. VICODIN [Concomitant]
  3. AMITRIPTYLINE HCL [Concomitant]
  4. SYNTHROID [Concomitant]
  5. NEXIUM [Concomitant]
  6. OXYCONTIN [Concomitant]
  7. PYRIDIUM [Concomitant]

REACTIONS (3)
  - BLISTER [None]
  - BURNING SENSATION [None]
  - RASH [None]
